FAERS Safety Report 14423978 (Version 2)
Quarter: 2018Q1

REPORT INFORMATION
  Report Type: Spontaneous
  Country: FI (occurrence: FI)
  Receive Date: 20180123
  Receipt Date: 20180131
  Transmission Date: 20180509
  Serious: Yes (Hospitalization, Other)
  Sender: FDA-Public Use
  Company Number: FI-AUROBINDO-AUR-APL-2018-002214

PATIENT
  Age: 30 Year
  Sex: Male

DRUGS (6)
  1. LITHIUM. [Interacting]
     Active Substance: LITHIUM
     Indication: BIPOLAR DISORDER
     Dosage: 1050 MG, QD
  2. LITHIUM. [Interacting]
     Active Substance: LITHIUM
     Route: 065
  3. PANACOD [Interacting]
     Active Substance: ACETAMINOPHEN\CODEINE PHOSPHATE
     Indication: BACK PAIN
     Dosage: UNK
  4. PANACOD [Interacting]
     Active Substance: ACETAMINOPHEN\CODEINE PHOSPHATE
     Dosage: (1)
     Route: 065
     Dates: start: 2017
  5. OLANZAPINE. [Suspect]
     Active Substance: OLANZAPINE
     Dosage: AT NIGHT
     Route: 065
  6. OLANZAPINE. [Suspect]
     Active Substance: OLANZAPINE
     Indication: BIPOLAR I DISORDER
     Dosage: 15 MG, PM

REACTIONS (6)
  - Weight increased [Unknown]
  - Drug interaction [Unknown]
  - Increased appetite [Unknown]
  - Intervertebral disc protrusion [Unknown]
  - Mania [Recovered/Resolved]
  - Intercepted drug prescribing error [Unknown]

NARRATIVE: CASE EVENT DATE: 201705
